FAERS Safety Report 7924712-8 (Version None)
Quarter: 2011Q4

REPORT INFORMATION
  Report Type: 
  Country: None (occurrence: None)
  Receive Date: 20111118
  Receipt Date: 20110325
  Transmission Date: 20120403
  Serious: No
  Sender: FDA-Public Use
  Company Number: US-AMGEN-USASP2011016393

PATIENT
  Age: 52 Year
  Sex: Female

DRUGS (12)
  1. NEXIUM [Concomitant]
     Dosage: 20 MG, UNK
  2. THYROID TAB [Concomitant]
     Dosage: 65 MG, UNK
  3. ESTER C                            /00008001/ [Concomitant]
  4. ENBREL [Suspect]
     Indication: PRODUCT USED FOR UNKNOWN INDICATION
     Dosage: 50 MG, QWK
  5. FLAXSEED OIL [Concomitant]
     Dosage: 1000 MG, UNK
  6. CELEBREX [Concomitant]
     Dosage: 200 MG, UNK
  7. XYZAL [Concomitant]
     Dosage: 5 MG, UNK
  8. FOLIC ACID [Concomitant]
     Dosage: 1 MG, UNK
  9. MULTIVITAMIN                       /00097801/ [Concomitant]
  10. METHOTREXATE [Concomitant]
     Dosage: 2.5 MG, UNK
  11. OMEGA 3                            /00931501/ [Concomitant]
     Dosage: 1000 MG, UNK
  12. SINGULAIR [Concomitant]
     Dosage: 10 MG, UNK

REACTIONS (5)
  - INJECTION SITE REACTION [None]
  - INJECTION SITE ERYTHEMA [None]
  - SYRINGE ISSUE [None]
  - INJECTION SITE HAEMATOMA [None]
  - INJECTION SITE SWELLING [None]
